FAERS Safety Report 25200118 (Version 1)
Quarter: 2025Q2

REPORT INFORMATION
  Report Type: Spontaneous
  Country: US (occurrence: None)
  Receive Date: 20250414
  Receipt Date: 20250414
  Transmission Date: 20250716
  Serious: Yes (Hospitalization, Other)
  Sender: FDA-CTU
  Company Number: None

PATIENT
  Age: 79 Year
  Sex: Male
  Weight: 121.11 kg

DRUGS (1)
  1. DUPIXENT [Suspect]
     Active Substance: DUPILUMAB
     Indication: Asthma
     Route: 058

REACTIONS (6)
  - Dyspnoea [None]
  - Chest discomfort [None]
  - Chills [None]
  - Systemic inflammatory response syndrome [None]
  - Leukocytosis [None]
  - Atrial flutter [None]

NARRATIVE: CASE EVENT DATE: 20250330
